FAERS Safety Report 25930730 (Version 1)
Quarter: 2025Q4

REPORT INFORMATION
  Report Type: Spontaneous
  Country: US (occurrence: None)
  Receive Date: 20251016
  Receipt Date: 20251016
  Transmission Date: 20260118
  Serious: Yes (unspecified)
  Sender: FDA-CTU
  Company Number: None

PATIENT
  Age: 70 Year
  Sex: Female
  Weight: 69.75 kg

DRUGS (2)
  1. KLONOPIN [Suspect]
     Active Substance: CLONAZEPAM
     Indication: Myoclonus
     Dosage: OTHER QUANTITY : 1 TABLET(S);?FREQUENCY : AT BEDTIME;?
     Route: 048
     Dates: start: 19961001, end: 20201007
  2. KLONOPIN [Suspect]
     Active Substance: CLONAZEPAM
     Indication: Muscle spasms

REACTIONS (1)
  - Drug dependence [None]

NARRATIVE: CASE EVENT DATE: 19961001
